FAERS Safety Report 10563085 (Version 1)
Quarter: 2014Q4

REPORT INFORMATION
  Report Type: Spontaneous
  Country: US (occurrence: None)
  Receive Date: 20141103
  Receipt Date: 20141103
  Transmission Date: 20150529
  Serious: Yes (Other)
  Sender: FDA-Public Use
  Company Number: None

PATIENT
  Age: 18 Year
  Sex: Male
  Weight: 57.15 kg

DRUGS (2)
  1. OMEPRAZOLE 20 MG CAPSULE [Suspect]
     Active Substance: OMEPRAZOLE
     Indication: GASTROOESOPHAGEAL REFLUX DISEASE
     Dosage: 20 MG, 1 CAPSULE DAILY, BEFORE DINNER, BY MOUTH
     Route: 048
     Dates: start: 20140831, end: 20140901
  2. PRILOSEC [Concomitant]
     Active Substance: OMEPRAZOLE MAGNESIUM

REACTIONS (3)
  - Vision blurred [None]
  - Pruritus [None]
  - Migraine [None]

NARRATIVE: CASE EVENT DATE: 20140901
